FAERS Safety Report 6150767-X (Version None)
Quarter: 2009Q2

REPORT INFORMATION
  Report Type: 
  Country: None (occurrence: None)
  Receive Date: 20090408
  Receipt Date: 20090402
  Transmission Date: 20091009
  Serious: Yes (Death)
  Sender: FDA-Public Use
  Company Number: 190157USA

PATIENT
  Age: 21 Year
  Sex: Female

DRUGS (2)
  1. NORDETTE 28 DAY TABLET (ETHINYLESTRADIOL W/LEVONORGESTREL) [Suspect]
     Indication: CONTRACEPTION
  2. DEPO-PROVERA [Suspect]
     Indication: CONTRACEPTION
     Dosage: INTRAMUSCULAR
     Route: 030

REACTIONS (5)
  - BRAIN HERNIATION [None]
  - CEREBRAL INFARCTION [None]
  - CEREBRAL VENOUS THROMBOSIS [None]
  - DIARRHOEA [None]
  - SUPERIOR SAGITTAL SINUS THROMBOSIS [None]
